FAERS Safety Report 5670685-0 (Version None)
Quarter: 2008Q1

REPORT INFORMATION
  Report Type: 
  Country: None (occurrence: None)
  Receive Date: 20080317
  Receipt Date: 20080317
  Transmission Date: 20080703
  Serious: Yes (Other)
  Sender: FDA-Public Use
  Company Number: None

PATIENT
  Sex: Male
  Weight: 96.6162 kg

DRUGS (6)
  1. LITHOBID [Suspect]
     Indication: METASTATIC RENAL CELL CARCINOMA
     Dosage: 300MG ORALLY 4 TIMES DA
     Route: 048
  2. PREVACID [Concomitant]
  3. MEGACE [Concomitant]
  4. DECADRON [Concomitant]
  5. MIRICLE MOUTH WASH [Concomitant]
  6. OXYCONTIN [Concomitant]

REACTIONS (6)
  - ANOREXIA [None]
  - BLOOD CREATININE INCREASED [None]
  - BLOOD POTASSIUM INCREASED [None]
  - NAUSEA [None]
  - ORAL DISORDER [None]
  - ORAL PAIN [None]
